FAERS Safety Report 23551186 (Version 1)
Quarter: 2024Q1

REPORT INFORMATION
  Report Type: Spontaneous
  Country: US (occurrence: US)
  Receive Date: 20240222
  Receipt Date: 20240222
  Transmission Date: 20240410
  Serious: No
  Sender: FDA-Public Use
  Company Number: US-002147023-NVSC2024US036185

PATIENT
  Sex: Female
  Weight: 65 kg

DRUGS (1)
  1. INCLISIRAN [Suspect]
     Active Substance: INCLISIRAN
     Indication: Hyperlipidaemia
     Dosage: 184 MG, 0, +3MO (SECOND INDUCTION DOSE)
     Route: 058
     Dates: start: 20230806, end: 20231103

REACTIONS (6)
  - Neck pain [Recovering/Resolving]
  - Burning sensation [Recovering/Resolving]
  - Intervertebral disc disorder [Unknown]
  - Headache [Recovering/Resolving]
  - Pain in extremity [Recovering/Resolving]
  - Back pain [Recovering/Resolving]
